FAERS Safety Report 17940101 (Version 5)
Quarter: 2021Q2

REPORT INFORMATION
  Report Type: Spontaneous
  Country: PT (occurrence: PT)
  Receive Date: 20200625
  Receipt Date: 20210603
  Transmission Date: 20210717
  Serious: Yes (Hospitalization, Other)
  Sender: FDA-Public Use
  Company Number: PT-SA-2020SA157721

PATIENT
  Age: 58 Year
  Sex: Male
  Weight: 95 kg

DRUGS (22)
  1. PANTOPRAZOLE [Concomitant]
     Active Substance: PANTOPRAZOLE
  2. BILASTINE [Concomitant]
     Active Substance: BILASTINE
     Dosage: 20 MG, QD (20 MG 1ID SOS)
  3. FOLIC ACID. [Concomitant]
     Active Substance: FOLIC ACID
     Dosage: 5 MG, QD
  4. PROTOPIC [Concomitant]
     Active Substance: TACROLIMUS
     Dosage: 0.3 PROACTIVE
  5. DUPIXENT [Suspect]
     Active Substance: DUPILUMAB
     Indication: DERMATITIS ATOPIC
     Dosage: 600 MG, 1X
     Route: 023
     Dates: start: 20200517, end: 20200517
  6. INSULIN GLARGINE [Concomitant]
     Active Substance: INSULIN GLARGINE
     Dosage: 10 IU, QD
  7. METFORMIN [Concomitant]
     Active Substance: METFORMIN HYDROCHLORIDE
  8. BETAMETHASONE. [Concomitant]
     Active Substance: BETAMETHASONE
  9. AMLODIPINE [Concomitant]
     Active Substance: AMLODIPINE BESYLATE
  10. FERRITIN [Concomitant]
     Active Substance: FERRITIN
  11. ATORVASTATIN [Concomitant]
     Active Substance: ATORVASTATIN
     Dosage: 10 MG, QD
  12. SYMBICORT [Concomitant]
     Active Substance: BUDESONIDE\FORMOTEROL FUMARATE DIHYDRATE
     Dosage: 2 DF, Q12H (2+2) (TURBOHALER 160 / 4.5 SOS )
  13. BROMAZEPAM [Concomitant]
     Active Substance: BROMAZEPAM
     Indication: INSOMNIA
     Dosage: 1.5 MG, QD (SOS)
  14. DUPIXENT [Suspect]
     Active Substance: DUPILUMAB
     Indication: DERMATITIS ATOPIC
     Dosage: 300 MG, QOW
     Route: 023
  15. CANDESARTAN. [Concomitant]
     Active Substance: CANDESARTAN
     Dosage: 32 MG, QD (AT 11 AM)
  16. AMLODIPINE [Concomitant]
     Active Substance: AMLODIPINE BESYLATE
     Dosage: 10 MG
  17. INDAPAMIDE. [Concomitant]
     Active Substance: INDAPAMIDE
     Dosage: 1.5 MG AT 9 AM
  18. INSULIN LISPRO [Concomitant]
     Active Substance: INSULIN LISPRO
     Dosage: 8 IU, QD
  19. INSULIN GLARGINE [Concomitant]
     Active Substance: INSULIN GLARGINE
     Dosage: 8 IU, QD (AT NIGHT)
  20. CANDESARTAN. [Concomitant]
     Active Substance: CANDESARTAN
     Dosage: 16 MG, QD
  21. DIPROSONE [Concomitant]
     Active Substance: BETAMETHASONE DIPROPIONATE
     Dosage: UNK (SOS)
  22. ACYCLOVIR [ACICLOVIR] [Concomitant]
     Active Substance: ACYCLOVIR

REACTIONS (15)
  - Arrhythmia [Recovered/Resolved]
  - Syncope [Recovering/Resolving]
  - Intracranial pressure increased [Unknown]
  - Encephalitis [Unknown]
  - Disinhibition [Unknown]
  - Aura [Recovering/Resolving]
  - Epilepsy [Unknown]
  - Tonic clonic movements [Unknown]
  - Meningoencephalitis herpetic [Unknown]
  - Headache [Recovering/Resolving]
  - Confusional state [Unknown]
  - Postictal state [Unknown]
  - Ventricular extrasystoles [Recovering/Resolving]
  - Therapeutic response unexpected [Unknown]
  - Disorientation [Recovering/Resolving]

NARRATIVE: CASE EVENT DATE: 2020
